FAERS Safety Report 11747654 (Version 2)
Quarter: 2015Q4

REPORT INFORMATION
  Report Type: Spontaneous
  Country: US (occurrence: None)
  Receive Date: 20151117
  Receipt Date: 20151120
  Transmission Date: 20160304
  Serious: Yes (Other)
  Sender: FDA-Public Use
  Company Number: US-MDT-ADR-2015-02169

PATIENT
  Age: 21 Year
  Sex: Female

DRUGS (2)
  1. COMPOUNDED BACLOFEN INTRATHECAL 900 MCG/ML [Suspect]
     Active Substance: BACLOFEN
     Indication: SPINAL PAIN
     Dosage: 180.13 MCG/DAY
  2. BUPIVACAINE INTRATHECAL 30 MG/ML [Suspect]
     Active Substance: BUPIVACAINE
     Indication: SPINAL PAIN
     Dosage: 6.004 MG/DAY

REACTIONS (3)
  - Drug withdrawal syndrome [None]
  - Gait disturbance [None]
  - Hypoaesthesia [None]
